FAERS Safety Report 24721610 (Version 1)
Quarter: 2024Q4

REPORT INFORMATION
  Report Type: Other
  Country: CN (occurrence: CN)
  Receive Date: 20241211
  Receipt Date: 20241211
  Transmission Date: 20250115
  Serious: Yes (Hospitalization, Other)
  Sender: PL DEVELOPMENTS
  Company Number: CN-P+L Developments of Newyork Corporation-2166896

PATIENT
  Age: 27 Year
  Sex: Male

DRUGS (3)
  1. OMEPRAZOLE MAGNESIUM [Suspect]
     Active Substance: OMEPRAZOLE MAGNESIUM
     Indication: Chronic gastritis
  2. SILIBININ [Concomitant]
     Active Substance: SILIBININ
  3. URSODIOL [Concomitant]
     Active Substance: URSODIOL

REACTIONS (1)
  - Insulin autoimmune syndrome [Recovered/Resolved]
